FAERS Safety Report 4294362-6 (Version None)
Quarter: 2004Q1

REPORT INFORMATION
  Report Type: 
  Country: None (occurrence: None)
  Receive Date: 20040211
  Receipt Date: 20040206
  Transmission Date: 20041129
  Serious: Yes (Life-Threatening, Hospitalization)
  Sender: FDA-Public Use
  Company Number: 2004197973FR

PATIENT
  Age: 53 Year
  Sex: Female

DRUGS (4)
  1. CAMPTOSAR [Suspect]
     Indication: COLORECTAL CANCER METASTATIC
     Dosage: 490 MG, CYCLIC, IV
     Route: 042
     Dates: start: 20040120, end: 20040120
  2. CETUXIMAB (CETUXIMAB) [Suspect]
     Indication: COLORECTAL CANCER METASTATIC
     Dosage: 350 MG, CYCLIC, IV
     Route: 042
     Dates: start: 20040127, end: 20040127
  3. PROPRANOLOL [Concomitant]
  4. PAROXETINE HCL [Concomitant]

REACTIONS (8)
  - ANAEMIA [None]
  - ANURIA [None]
  - BLOOD CREATININE INCREASED [None]
  - HYPOTENSION [None]
  - NEUTROPENIA [None]
  - PLATELET COUNT DECREASED [None]
  - PYREXIA [None]
  - SEPTIC SHOCK [None]
